FAERS Safety Report 4466054-1 (Version None)
Quarter: 2004Q4

REPORT INFORMATION
  Report Type: 
  Country: None (occurrence: None)
  Receive Date: 20041005
  Receipt Date: 20040917
  Transmission Date: 20050328
  Serious: Yes (Other)
  Sender: FDA-Public Use
  Company Number: US-AMGEN-US091753

PATIENT
  Age: 50 Year
  Sex: Male

DRUGS (12)
  1. ENBREL [Suspect]
     Indication: RHEUMATOID ARTHRITIS
     Route: 058
     Dates: start: 20040426, end: 20040607
  2. LISINOPRIL [Concomitant]
  3. LIPITOR [Concomitant]
  4. VIOXX [Concomitant]
  5. METHOTREXATE [Concomitant]
  6. FOLATE SODIUM [Concomitant]
  7. PREDNISONE [Concomitant]
  8. ARAVA [Concomitant]
  9. LOPERAMIDE HCL [Concomitant]
  10. AMITRIPTYLINE HCL [Concomitant]
  11. PROPOXYPHENE [Concomitant]
  12. AMBIEN [Concomitant]

REACTIONS (2)
  - MYELITIS [None]
  - MYELOPATHY [None]
